FAERS Safety Report 19157753 (Version 2)
Quarter: 2021Q2

REPORT INFORMATION
  Report Type: Spontaneous
  Country: US (occurrence: US)
  Receive Date: 20210420
  Receipt Date: 20210421
  Transmission Date: 20210717
  Serious: No
  Sender: FDA-Public Use
  Company Number: US-GLAXOSMITHKLINE-USCH2021019377

PATIENT
  Sex: Female

DRUGS (1)
  1. VOLTAREN ARTHRITIS PAIN [Suspect]
     Active Substance: DICLOFENAC SODIUM
     Indication: PRODUCT USED FOR UNKNOWN INDICATION
     Dosage: UNK
     Dates: start: 20210412, end: 20210412

REACTIONS (4)
  - Product use in unapproved indication [Unknown]
  - Skin pressure mark [Recovered/Resolved]
  - Product administered at inappropriate site [Unknown]
  - Sticky skin [Recovered/Resolved]

NARRATIVE: CASE EVENT DATE: 20210412
